FAERS Safety Report 23504411 (Version 1)
Quarter: 2024Q1

REPORT INFORMATION
  Report Type: Spontaneous
  Country: US (occurrence: US)
  Receive Date: 20240209
  Receipt Date: 20240209
  Transmission Date: 20240410
  Serious: No
  Sender: FDA-Public Use
  Company Number: US-IGSA-BIG0022306

PATIENT
  Sex: Female
  Weight: 93 kg

DRUGS (1)
  1. PROLASTIN-C LIQUID [Suspect]
     Active Substance: .ALPHA.1-PROTEINASE INHIBITOR HUMAN
     Indication: Alpha-1 antitrypsin deficiency
     Dosage: 5580 MILLIGRAM, Q.WK.
     Route: 042
     Dates: start: 20220517

REACTIONS (1)
  - Tachycardia [Not Recovered/Not Resolved]
